FAERS Safety Report 6510692-9 (Version None)
Quarter: 2009Q4

REPORT INFORMATION
  Report Type: 
  Country: None (occurrence: None)
  Receive Date: 20091222
  Receipt Date: 20091020
  Transmission Date: 20100525
  Serious: No
  Sender: FDA-Public Use
  Company Number: US-ASTRAZENECA-2009SE21287

PATIENT
  Age: 56 Year
  Sex: Male
  Weight: 86.2 kg

DRUGS (10)
  1. CRESTOR [Suspect]
     Route: 048
     Dates: start: 20090401
  2. XANAX [Concomitant]
     Indication: ANXIETY
  3. ASPIRIN [Concomitant]
     Indication: CARDIAC DISORDER
  4. COREG [Concomitant]
     Indication: CARDIAC DISORDER
  5. PLAVIX [Concomitant]
     Indication: CARDIAC DISORDER
  6. LASIX [Concomitant]
     Indication: CARDIAC DISORDER
  7. NITROGLYCERIN [Concomitant]
     Indication: VAGINAL DISORDER
  8. DIOVAN [Concomitant]
     Indication: CARDIAC DISORDER
  9. POTASSIUM [Concomitant]
     Indication: CARDIAC DISORDER
  10. FISH OIL [Concomitant]
     Indication: CARDIAC DISORDER

REACTIONS (2)
  - HAEMOCONCENTRATION [None]
  - PALPITATIONS [None]
